FAERS Safety Report 14978333 (Version 1)
Quarter: 2018Q2

REPORT INFORMATION
  Report Type: Spontaneous
  Country: IE (occurrence: IE)
  Receive Date: 20180606
  Receipt Date: 20180606
  Transmission Date: 20180711
  Serious: Yes (Other)
  Sender: FDA-Public Use
  Company Number: PHHY2018IE014130

PATIENT
  Age: 66 Year
  Sex: Male

DRUGS (2)
  1. RISPERIDONE. [Suspect]
     Active Substance: RISPERIDONE
     Indication: PRODUCT USED FOR UNKNOWN INDICATION
     Dosage: 4 MG, QD
     Route: 048
     Dates: start: 201706
  2. RISPERDAL CONSTA [Suspect]
     Active Substance: RISPERIDONE
     Indication: PRODUCT USED FOR UNKNOWN INDICATION
     Dosage: 50 MG, Q2W
     Route: 065
     Dates: end: 201706

REACTIONS (4)
  - Mental disorder [Unknown]
  - Gallbladder cancer [Unknown]
  - Pancreatic carcinoma [Unknown]
  - Malaise [Unknown]

NARRATIVE: CASE EVENT DATE: 201706
